FAERS Safety Report 20772354 (Version 4)
Quarter: 2022Q2

REPORT INFORMATION
  Report Type: Spontaneous
  Country: AU (occurrence: NZ)
  Receive Date: 20220502
  Receipt Date: 20220615
  Transmission Date: 20220721
  Serious: Yes (Hospitalization, Other)
  Sender: FDA-Public Use
  Company Number: NZ-SANOFI-01080014

PATIENT
  Sex: Male

DRUGS (2)
  1. LANTUS SOLOSTAR [Suspect]
     Active Substance: INSULIN GLARGINE
     Dosage: 24 IU
  2. NOVORAPID [Concomitant]
     Active Substance: INSULIN ASPART

REACTIONS (3)
  - Near death experience [Unknown]
  - Hospitalisation [Unknown]
  - Product dose omission issue [Unknown]
